FAERS Safety Report 9347041 (Version 2)
Quarter: 2013Q3

REPORT INFORMATION
  Report Type: Report from Study
  Country: DE (occurrence: DE)
  Receive Date: 20130613
  Receipt Date: 20130724
  Transmission Date: 20140515
  Serious: Yes (Hospitalization)
  Sender: FDA-Public Use
  Company Number: DE-ABBOTT-13P-062-1093955-00

PATIENT
  Age: 54 Year
  Sex: Female
  Weight: 46 kg

DRUGS (16)
  1. HUMIRA [Suspect]
     Indication: CROHN^S DISEASE
     Dosage: ONCE
     Route: 058
     Dates: start: 20080627, end: 20080627
  2. HUMIRA [Suspect]
     Dosage: WEEK 2
     Route: 058
  3. HUMIRA [Suspect]
     Route: 058
     Dates: end: 20130103
  4. HUMIRA [Suspect]
     Route: 058
     Dates: start: 20130122
  5. METOPROLOL SUCCINATE [Concomitant]
     Indication: ARRHYTHMIA
     Dates: start: 2004
  6. LOPEDIUM [Concomitant]
     Indication: DIARRHOEA
     Dates: start: 20080314
  7. PENTASA [Concomitant]
     Indication: CROHN^S DISEASE
     Dates: start: 20080411
  8. FALTHROM [Concomitant]
     Indication: PROPHYLAXIS
     Dates: start: 20081031
  9. FALTHROM [Concomitant]
     Indication: EMBOLISM
  10. PROPOFOL [Concomitant]
     Indication: COLONOSCOPY
     Dates: start: 20100707, end: 20100707
  11. PROPOFOL [Concomitant]
     Dates: start: 20110124, end: 20110124
  12. AZATHIOPRINE [Concomitant]
     Indication: CROHN^S DISEASE
     Dates: end: 200401
  13. AZATHIOPRINE [Concomitant]
     Indication: CROHN^S DISEASE
     Dates: start: 20110124
  14. CITALOPRAM [Concomitant]
     Indication: DEPRESSION
     Dates: start: 201005, end: 201112
  15. CITALOPRAM [Concomitant]
     Dates: start: 201201
  16. PANTOPRAZOL [Concomitant]
     Indication: PROPHYLAXIS
     Dates: start: 20090619

REACTIONS (1)
  - Urosepsis [Recovered/Resolved]
